FAERS Safety Report 21205487 (Version 2)
Quarter: 2023Q1

REPORT INFORMATION
  Report Type: Report from Study
  Country: BR (occurrence: BR)
  Receive Date: 20220812
  Receipt Date: 20230127
  Transmission Date: 20230417
  Serious: Yes (Other)
  Sender: FDA-Public Use
  Company Number: BR-JNJFOC-20220815684

PATIENT
  Age: 51 Year
  Sex: Female
  Weight: 70 kg

DRUGS (2)
  1. SIMPONI [Suspect]
     Active Substance: GOLIMUMAB
     Indication: Rheumatoid arthritis
     Route: 058
     Dates: start: 20150417, end: 2020
  2. SIMPONI [Suspect]
     Active Substance: GOLIMUMAB

REACTIONS (8)
  - Systemic lupus erythematosus [Not Recovered/Not Resolved]
  - Cataract [Unknown]
  - Asphyxia [Unknown]
  - Limb operation [Unknown]
  - Limb discomfort [Unknown]
  - Epistaxis [Unknown]
  - Insomnia [Unknown]
  - Dry mouth [Unknown]
